FAERS Safety Report 9486115 (Version 1)
Quarter: 2013Q3

REPORT INFORMATION
  Report Type: Spontaneous
  Country: US (occurrence: US)
  Receive Date: 20130829
  Receipt Date: 20130829
  Transmission Date: 20140515
  Serious: Yes (Other)
  Sender: FDA-Public Use
  Company Number: 2013SP002439

PATIENT
  Age: 64 Year
  Sex: Male
  Weight: 115 kg

DRUGS (23)
  1. LATUDA [Suspect]
     Indication: BIPOLAR DISORDER
     Route: 048
     Dates: start: 20130712, end: 20130728
  2. LATUDA [Suspect]
     Indication: POST-TRAUMATIC STRESS DISORDER
     Route: 048
     Dates: start: 20130712, end: 20130728
  3. LANTUS [Concomitant]
     Indication: DIABETES MELLITUS
     Route: 058
  4. REQUIP [Concomitant]
     Indication: RESTLESS LEGS SYNDROME
     Route: 048
  5. TRAZODONE [Concomitant]
     Indication: BIPOLAR DISORDER
     Route: 048
  6. TRAZODONE [Concomitant]
     Indication: POST-TRAUMATIC STRESS DISORDER
     Route: 048
  7. ATORVASTATIN [Concomitant]
     Indication: BLOOD CHOLESTEROL
     Route: 048
  8. OMEPRAZOLE [Concomitant]
     Indication: GASTRIC DISORDER
     Route: 048
  9. GLIPIZIDE XL [Concomitant]
     Indication: DIABETES MELLITUS
     Route: 048
  10. GEMFIBROZIL [Concomitant]
     Indication: PRODUCT USED FOR UNKNOWN INDICATION
     Route: 048
  11. DEPAKOTE [Concomitant]
     Indication: BIPOLAR DISORDER
     Route: 048
  12. DEPAKOTE [Concomitant]
     Indication: POST-TRAUMATIC STRESS DISORDER
     Route: 048
  13. BUPROPION [Concomitant]
     Indication: BIPOLAR DISORDER
     Route: 048
  14. BUPROPION [Concomitant]
     Indication: POST-TRAUMATIC STRESS DISORDER
     Route: 048
  15. CARVEDILOL [Concomitant]
     Indication: CARDIAC DISORDER
     Route: 048
  16. POTASSIUM [Concomitant]
     Indication: MINERAL SUPPLEMENTATION
     Route: 048
  17. LASIX /00032602/ [Concomitant]
     Indication: CARDIOMYOPATHY
     Route: 048
  18. LASIX /00032602/ [Concomitant]
     Indication: MYOCARDIAL INFARCTION
     Route: 048
  19. LISINOPRIL [Concomitant]
     Indication: CARDIAC DISORDER
     Route: 048
  20. JANUVIA [Concomitant]
     Indication: DIABETES MELLITUS
     Route: 048
  21. ASPIRIN [Concomitant]
     Indication: CARDIAC DISORDER
     Route: 048
  22. PERCOCET /00867901/ [Concomitant]
     Indication: BACK PAIN
     Route: 048
  23. COLACE [Concomitant]
     Indication: CONSTIPATION
     Route: 048

REACTIONS (4)
  - Ventricular tachycardia [Recovered/Resolved]
  - Drug hypersensitivity [Recovered/Resolved]
  - Dizziness [Recovered/Resolved]
  - Hypotension [Recovered/Resolved]
